FAERS Safety Report 5356125-X (Version None)
Quarter: 2007Q2

REPORT INFORMATION
  Report Type: 
  Country: None (occurrence: None)
  Receive Date: 20070613
  Receipt Date: 20070611
  Transmission Date: 20071010
  Serious: Yes (Hospitalization)
  Sender: FDA-Public Use
  Company Number: US-BOEHRINGER INGELHEIM PHARMACEUTICALS, INC.-2007-BP-05579BP

PATIENT
  Age: 51 Year
  Sex: Female

DRUGS (1)
  1. SPIRIVA [Suspect]
     Dates: start: 20060801, end: 20070208

REACTIONS (4)
  - DYSPNOEA [None]
  - FATIGUE [None]
  - OEDEMA PERIPHERAL [None]
  - PULMONARY HYPERTENSION [None]
